FAERS Safety Report 7864410-2 (Version None)
Quarter: 2011Q4

REPORT INFORMATION
  Report Type: 
  Country: None (occurrence: None)
  Receive Date: 20111028
  Receipt Date: 20111021
  Transmission Date: 20120403
  Serious: No
  Sender: FDA-Public Use
  Company Number: PHHY2011DE70248

PATIENT
  Sex: Female
  Weight: 54 kg

DRUGS (6)
  1. ZOLOFT [Concomitant]
     Dosage: 100 MG/DAY
     Dates: start: 20110301
  2. BELOC-ZOC FORTE [Concomitant]
     Dosage: 80 MG/DAY
     Dates: start: 19900101
  3. OXAZEPAM [Concomitant]
     Dosage: 100 MG/DAY
     Dates: start: 20110301
  4. TASIGNA [Suspect]
     Indication: CHRONIC MYELOID LEUKAEMIA
     Dosage: 300 MG, BID
     Route: 048
     Dates: start: 20110412
  5. LOSAR [Concomitant]
     Dosage: 12,5 MG/DAY
     Dates: start: 19920101
  6. L-THYROX [Concomitant]
     Dosage: 75 UG, UNK
     Dates: start: 20100601

REACTIONS (1)
  - ALOPECIA [None]
